FAERS Safety Report 6921043-X (Version None)
Quarter: 2010Q3

REPORT INFORMATION
  Report Type: 
  Country: None (occurrence: None)
  Receive Date: 20100812
  Receipt Date: 20100805
  Transmission Date: 20110219
  Serious: Yes (Other)
  Sender: FDA-Public Use
  Company Number: JP-ROCHE-713294

PATIENT
  Sex: Female
  Weight: 50 kg

DRUGS (19)
  1. ACTEMRA [Suspect]
     Indication: RHEUMATOID ARTHRITIS
     Route: 041
     Dates: start: 20030825, end: 20030825
  2. ACTEMRA [Suspect]
     Route: 041
     Dates: start: 20080616, end: 20080616
  3. ACTEMRA [Suspect]
     Route: 041
     Dates: start: 20080714, end: 20080714
  4. ACTEMRA [Suspect]
     Route: 041
     Dates: start: 20080818, end: 20080818
  5. ACTEMRA [Suspect]
     Route: 041
     Dates: start: 20080918, end: 20080918
  6. ACTEMRA [Suspect]
     Route: 041
     Dates: start: 20081023, end: 20081023
  7. ACTEMRA [Suspect]
     Route: 041
     Dates: start: 20081127, end: 20081127
  8. ACTEMRA [Suspect]
     Route: 041
     Dates: start: 20081225, end: 20081225
  9. ACTEMRA [Suspect]
     Route: 041
     Dates: start: 20090122
  10. PREDNISOLONE [Suspect]
     Indication: RHEUMATOID ARTHRITIS
     Dosage: FORM: PERORAL AGENT
     Route: 048
     Dates: end: 20080817
  11. PREDNISOLONE [Suspect]
     Dosage: FORM: PERORAL AGENT
     Route: 048
     Dates: start: 20080818
  12. LOXONIN [Suspect]
     Indication: RHEUMATOID ARTHRITIS
     Dosage: LOXOPROFEN SODIUM
     Route: 048
  13. ISCOTIN [Concomitant]
     Dosage: FORM: PERORAL AGENT
     Route: 048
     Dates: start: 20080918, end: 20100525
  14. RABEPRAZOLE SODIUM [Concomitant]
     Route: 048
  15. ALFAROL [Concomitant]
     Dosage: FORM: PERORAL AGENT
     Route: 048
  16. FOSAMAX [Concomitant]
     Dosage: DRUG: FOSAMAC 35 MG
     Route: 048
     Dates: end: 20081126
  17. BENET [Concomitant]
     Route: 048
     Dates: start: 20081127
  18. PL [Concomitant]
     Dosage: FORM: GRANULATED POWDER
     Route: 048
  19. RHEUMATREX [Concomitant]
     Route: 048
     Dates: start: 19991204

REACTIONS (6)
  - CYTOMEGALOVIRUS TEST POSITIVE [None]
  - HEADACHE [None]
  - HEPATIC FUNCTION ABNORMAL [None]
  - INJURY [None]
  - PRIMARY CEREBELLAR DEGENERATION [None]
  - RIB FRACTURE [None]
